FAERS Safety Report 8834112 (Version 1)
Quarter: 2012Q4

REPORT INFORMATION
  Report Type: Spontaneous
  Country: US (occurrence: None)
  Receive Date: 20121011
  Receipt Date: 20121011
  Transmission Date: 20130627
  Serious: Yes (Life-Threatening, Hospitalization, Disabling, Other)
  Sender: FDA-Public Use
  Company Number: None

PATIENT
  Age: 45 Year
  Sex: Female
  Weight: 65.77 kg

DRUGS (1)
  1. DECADRON [Suspect]
     Indication: FACET JOINT BLOCK
     Dosage: 3mg It
     Route: 038
     Dates: start: 20090423, end: 20101221

REACTIONS (8)
  - Grand mal convulsion [None]
  - Petit mal epilepsy [None]
  - Postictal paralysis [None]
  - Hemiplegia [None]
  - Adrenal insufficiency [None]
  - Impaired driving ability [None]
  - Asthenia [None]
  - Tremor [None]
